FAERS Safety Report 5602499-1 (Version None)
Quarter: 2008Q1

REPORT INFORMATION
  Report Type: 
  Country: None (occurrence: None)
  Receive Date: 20080125
  Receipt Date: 20080124
  Transmission Date: 20080703
  Serious: Yes (Other)
  Sender: FDA-Public Use
  Company Number: A0704383A

PATIENT
  Sex: Female

DRUGS (2)
  1. IMITREX [Suspect]
     Indication: MIGRAINE
     Dosage: 100MG FOUR TIMES PER WEEK
     Route: 048
     Dates: start: 20071216, end: 20071216
  2. NO CONCURRENT MEDICATION [Concomitant]

REACTIONS (3)
  - BALANCE DISORDER [None]
  - DYSARTHRIA [None]
  - TRANSIENT ISCHAEMIC ATTACK [None]
